FAERS Safety Report 4558964-1 (Version None)
Quarter: 2005Q1

REPORT INFORMATION
  Report Type: 
  Country: None (occurrence: None)
  Receive Date: 20050121
  Receipt Date: 20050112
  Transmission Date: 20050727
  Serious: Yes (Hospitalization)
  Sender: FDA-Public Use
  Company Number: US-MERCK-0501USA01967

PATIENT
  Age: 23 Year
  Sex: Male

DRUGS (4)
  1. DECADRON [Suspect]
     Indication: SPINAL CORD INJURY
     Route: 041
  2. DECADRON [Suspect]
     Route: 041
  3. ALBUTEROL [Concomitant]
     Route: 055
  4. FLUTICASONE PROPIONATE [Concomitant]
     Route: 055

REACTIONS (4)
  - ADRENAL INSUFFICIENCY [None]
  - PNEUMONIA [None]
  - PYREXIA [None]
  - RESPIRATORY FAILURE [None]
